FAERS Safety Report 18623391 (Version 1)
Quarter: 2020Q4

REPORT INFORMATION
  Report Type: Spontaneous
  Country: RU (occurrence: RU)
  Receive Date: 20201216
  Receipt Date: 20201216
  Transmission Date: 20210114
  Serious: Yes (Other)
  Sender: FDA-Public Use
  Company Number: RU-SA-2020SA354773

PATIENT

DRUGS (1)
  1. TOUJEO [Suspect]
     Active Substance: INSULIN GLARGINE
     Indication: TYPE 2 DIABETES MELLITUS
     Dosage: 18 IU
     Route: 058
     Dates: start: 20191103, end: 20191121

REACTIONS (3)
  - Renal pain [Recovered/Resolved]
  - Pruritus [Recovered/Resolved]
  - Blood glucose increased [Recovered/Resolved]
